FAERS Safety Report 12720956 (Version 1)
Quarter: 2016Q3

REPORT INFORMATION
  Report Type: Spontaneous
  Country: US (occurrence: US)
  Receive Date: 20160907
  Receipt Date: 20160907
  Transmission Date: 20161109
  Serious: No
  Sender: FDA-Public Use
  Company Number: None

PATIENT
  Sex: Male

DRUGS (1)
  1. SOOLANTRA [Suspect]
     Active Substance: IVERMECTIN

REACTIONS (2)
  - Peripheral venous disease [None]
  - Peripheral swelling [None]
